FAERS Safety Report 18511460 (Version 1)
Quarter: 2020Q4

REPORT INFORMATION
  Report Type: Spontaneous
  Country: PL (occurrence: PL)
  Receive Date: 20201117
  Receipt Date: 20201117
  Transmission Date: 20210114
  Serious: Yes (Life-Threatening, Hospitalization, Other)
  Sender: FDA-Public Use
  Company Number: PL-BAYER-2020-247381

PATIENT
  Sex: Male

DRUGS (4)
  1. ETAMSYLATE [Concomitant]
     Active Substance: ETHAMSYLATE
  2. ANTIHEMOPHILIC FACTOR VIII (RECOMBINANT) [Suspect]
     Active Substance: ANTIHEMOPHILIC FACTOR, HUMAN RECOMBINANT
     Dosage: UNK
  3. TRANEXAMIC ACID. [Concomitant]
     Active Substance: TRANEXAMIC ACID
  4. ANTIHEMOPHILIC FACTOR VIII (RECOMBINANT) [Suspect]
     Active Substance: ANTIHEMOPHILIC FACTOR, HUMAN RECOMBINANT
     Dosage: 750 IU

REACTIONS (7)
  - Gastrointestinal haemorrhage [Recovering/Resolving]
  - Haemarthrosis [None]
  - Otitis media [None]
  - Haematemesis [Recovering/Resolving]
  - Haemorrhage [None]
  - Abdominal pain [Recovering/Resolving]
  - Haemophilia [None]
